FAERS Safety Report 17471415 (Version 1)
Quarter: 2020Q1

REPORT INFORMATION
  Report Type: Spontaneous
  Country: US (occurrence: US)
  Receive Date: 20200228
  Receipt Date: 20200228
  Transmission Date: 20200409
  Serious: No
  Sender: FDA-Public Use
  Company Number: US-BIOGEN-2020BI00843737

PATIENT
  Age: 38 Year
  Sex: Female

DRUGS (1)
  1. TYSABRI [Suspect]
     Active Substance: NATALIZUMAB
     Indication: MULTIPLE SCLEROSIS
     Route: 042
     Dates: start: 20190912

REACTIONS (5)
  - Abdominal pain upper [Unknown]
  - Sensitivity to weather change [Unknown]
  - Humidity intolerance [Unknown]
  - Fall [Recovered/Resolved]
  - Back injury [Unknown]

NARRATIVE: CASE EVENT DATE: 202002
